FAERS Safety Report 8197462 (Version 2)
Quarter: 2012Q4

REPORT INFORMATION
  Report Type: 
  Country: US (occurrence: US)
  Receive Date: 20111024
  Receipt Date: 20120914
  Transmission Date: 20130627
  Serious: Yes (Other)
  Sender: FDA-Public Use
  Company Number: US-US-EMD SERONO, INC.-7090700

PATIENT
  Age: 44 None
  Sex: Female
  Weight: 52 kg

DRUGS (2)
  1. REBIF [Suspect]
     Indication: MULTIPLE SCLEROSIS
     Dates: start: 200504, end: 201103
  2. REBIF [Suspect]
     Indication: MULTIPLE SCLEROSIS
     Dates: start: 201106

REACTIONS (5)
  - Cholecystitis [Recovered/Resolved]
  - Weight decreased [Recovered/Resolved]
  - Liver function test abnormal [Recovered/Resolved]
  - Injection site erythema [Unknown]
  - Injection site pruritus [Unknown]
